FAERS Safety Report 8581145-1 (Version None)
Quarter: 2012Q3

REPORT INFORMATION
  Report Type: 
  Country: None (occurrence: None)
  Receive Date: 20120809
  Receipt Date: 20120802
  Transmission Date: 20120928
  Serious: Yes (Other)
  Sender: FDA-Public Use
  Company Number: US-JNJFOC-20120802606

PATIENT
  Sex: Female

DRUGS (3)
  1. CHEMOTHERAPY [Suspect]
     Indication: OVARIAN CANCER
     Route: 042
     Dates: end: 20120706
  2. DOXORUBICIN HYDROCHLORIDE [Suspect]
     Indication: OVARIAN CANCER
     Route: 042
     Dates: start: 20120313
  3. CHEMOTHERAPY [Suspect]
     Route: 042

REACTIONS (2)
  - TOOTH ABSCESS [None]
  - CARBOHYDRATE ANTIGEN 125 INCREASED [None]
